FAERS Safety Report 24136899 (Version 1)
Quarter: 2024Q3

REPORT INFORMATION
  Report Type: Report from Study
  Country: CA (occurrence: CA)
  Receive Date: 20240725
  Receipt Date: 20240725
  Transmission Date: 20241017
  Serious: Yes (Other)
  Sender: CSL BEHRING
  Company Number: CA-BEH-2024176026

PATIENT
  Age: 41 Year
  Sex: Female
  Weight: 103.4 kg

DRUGS (5)
  1. HIZENTRA [Suspect]
     Active Substance: HUMAN IMMUNOGLOBULIN G
     Indication: Secondary immunodeficiency
     Dosage: 7 G, QW
     Route: 065
     Dates: start: 20240606, end: 20240627
  2. SERTRALINE [Concomitant]
     Active Substance: SERTRALINE HYDROCHLORIDE
  3. NEXIUM [Concomitant]
     Active Substance: ESOMEPRAZOLE MAGNESIUM
  4. SYNTHROID [Concomitant]
     Active Substance: LEVOTHYROXINE SODIUM
  5. BILASTINE [Concomitant]
     Active Substance: BILASTINE

REACTIONS (2)
  - Exposure during pregnancy [Unknown]
  - In vitro fertilisation [Unknown]

NARRATIVE: CASE EVENT DATE: 20240624
